FAERS Safety Report 24147363 (Version 7)
Quarter: 2024Q4

REPORT INFORMATION
  Report Type: Spontaneous
  Country: AR (occurrence: AR)
  Receive Date: 20240729
  Receipt Date: 20241126
  Transmission Date: 20250115
  Serious: No
  Sender: PFIZER
  Company Number: AR-PFIZER INC-202400222167

PATIENT
  Age: 8 Year
  Sex: Male

DRUGS (2)
  1. GENOTROPIN [Suspect]
     Active Substance: SOMATROPIN
     Indication: Short stature
     Dosage: 0.8 MG, DAILY
     Dates: start: 20240702, end: 20240709
  2. GENOTROPIN [Suspect]
     Active Substance: SOMATROPIN
     Dosage: UNK
     Dates: start: 20240729

REACTIONS (3)
  - Injection site pain [Recovered/Resolved]
  - Fear of injection [Recovered/Resolved]
  - Patient-device incompatibility [Recovered/Resolved]

NARRATIVE: CASE EVENT DATE: 20240101
